FAERS Safety Report 18687461 (Version 2)
Quarter: 2021Q1

REPORT INFORMATION
  Report Type: Report from Study
  Country: US (occurrence: US)
  Receive Date: 20201231
  Receipt Date: 20210310
  Transmission Date: 20210419
  Serious: No
  Sender: FDA-Public Use
  Company Number: US-SA-2020SA375650

PATIENT
  Age: 53 Year
  Sex: Female

DRUGS (2)
  1. DUPILUMAB [Suspect]
     Active Substance: DUPILUMAB
     Indication: ASTHMA
     Dosage: 600 MG, 1X
     Route: 058
     Dates: start: 20201214, end: 20201214
  2. DUPILUMAB [Suspect]
     Active Substance: DUPILUMAB
     Dosage: 300MG, QOW
     Route: 058
     Dates: start: 20201228

REACTIONS (3)
  - Injection site extravasation [Not Recovered/Not Resolved]
  - Product use issue [Unknown]
  - Injection site pain [Recovered/Resolved]

NARRATIVE: CASE EVENT DATE: 202012
